FAERS Safety Report 5002043-6 (Version None)
Quarter: 2006Q2

REPORT INFORMATION
  Report Type: 
  Country: None (occurrence: None)
  Receive Date: 20060515
  Receipt Date: 20060131
  Transmission Date: 20061013
  Serious: Yes (Hospitalization, Disabling)
  Sender: FDA-Public Use
  Company Number: TT-MERCK-0602USA00391

PATIENT
  Age: 69 Year
  Sex: Male
  Weight: 84 kg

DRUGS (7)
  1. VIOXX [Suspect]
     Indication: GOUT
     Route: 048
     Dates: start: 20020101, end: 20040101
  2. ALLOPRINOL [Concomitant]
     Route: 065
  3. PLETAL [Concomitant]
     Route: 065
  4. DIGOXIN [Concomitant]
     Route: 065
     Dates: start: 20010101
  5. LASIX [Concomitant]
     Route: 065
     Dates: start: 19990101
  6. ATACAND [Concomitant]
     Route: 065
  7. VALIUM [Concomitant]
     Route: 065
     Dates: start: 20030101

REACTIONS (5)
  - ATRIAL FIBRILLATION [None]
  - DIABETES MELLITUS [None]
  - OVERDOSE [None]
  - PERIPHERAL EMBOLISM [None]
  - PULMONARY EMBOLISM [None]
